FAERS Safety Report 24936711 (Version 1)
Quarter: 2025Q1

REPORT INFORMATION
  Report Type: Spontaneous
  Country: US (occurrence: US)
  Receive Date: 20250206
  Receipt Date: 20250206
  Transmission Date: 20250409
  Serious: No
  Sender: OTSUKA
  Company Number: US-OTSUKA-2025_000437

PATIENT
  Age: 31 Year
  Sex: Female

DRUGS (3)
  1. ABILIFY ASIMTUFII [Suspect]
     Active Substance: ARIPIPRAZOLE
     Indication: Bipolar I disorder
     Route: 030
     Dates: start: 20241108
  2. ABILIFY MAINTENA [Suspect]
     Active Substance: ARIPIPRAZOLE
     Indication: Bipolar I disorder
     Route: 065
     Dates: start: 202009
  3. ABILIFY MAINTENA [Suspect]
     Active Substance: ARIPIPRAZOLE
     Route: 065
     Dates: end: 20241018

REACTIONS (2)
  - Injection site pain [Recovered/Resolved]
  - Inappropriate schedule of product administration [Unknown]

NARRATIVE: CASE EVENT DATE: 20250104
